FAERS Safety Report 25767939 (Version 1)
Quarter: 2025Q3

REPORT INFORMATION
  Report Type: Spontaneous
  Country: US (occurrence: US)
  Receive Date: 20250905
  Receipt Date: 20250905
  Transmission Date: 20251020
  Serious: No
  Sender: DOMPE FARMACEUTICI
  Company Number: US-FARMAPROD-202505-1626

PATIENT
  Sex: Male

DRUGS (17)
  1. OXERVATE [Suspect]
     Active Substance: CENEGERMIN-BKBJ
     Indication: Neurotrophic keratopathy
     Route: 047
     Dates: start: 20250428
  2. OXERVATE [Suspect]
     Active Substance: CENEGERMIN-BKBJ
  3. IVIZIA [Concomitant]
     Active Substance: POVIDONE
  4. PROTONIX [Concomitant]
     Active Substance: PANTOPRAZOLE SODIUM
  5. BACLOFEN [Concomitant]
     Active Substance: BACLOFEN
  6. ELIQUIS [Concomitant]
     Active Substance: APIXABAN
  7. ACYCLOVIR [Concomitant]
     Active Substance: ACYCLOVIR
  8. METOPROLOL SUCCINATE [Concomitant]
     Active Substance: METOPROLOL SUCCINATE
  9. LISINOPRIL [Concomitant]
     Active Substance: LISINOPRIL
  10. ALDACTONE [Concomitant]
     Active Substance: SPIRONOLACTONE
  11. PLAVIX [Concomitant]
     Active Substance: CLOPIDOGREL BISULFATE
  12. CRESTOR [Concomitant]
     Active Substance: ROSUVASTATIN CALCIUM
  13. VIGAMOX [Concomitant]
     Active Substance: MOXIFLOXACIN HYDROCHLORIDE
  14. KENALOG-10 [Concomitant]
     Active Substance: TRIAMCINOLONE ACETONIDE
  15. MIEBO [Concomitant]
     Active Substance: PERFLUOROHEXYLOCTANE
  16. MAXITROL [Concomitant]
     Active Substance: DEXAMETHASONE\NEOMYCIN SULFATE\POLYMYXIN B SULFATE
  17. HYDROCORTISONE-PRAMOXINE [Concomitant]

REACTIONS (4)
  - Taste disorder [Unknown]
  - Eye pain [Recovering/Resolving]
  - Eye swelling [Unknown]
  - Facial pain [Recovering/Resolving]
